FAERS Safety Report 7491098-5 (Version None)
Quarter: 2011Q2

REPORT INFORMATION
  Report Type: 
  Country: None (occurrence: None)
  Receive Date: 20110518
  Receipt Date: 20110518
  Transmission Date: 20111010
  Serious: Yes (Other)
  Sender: FDA-Public Use
  Company Number: None

PATIENT
  Age: 36 Year
  Sex: Female
  Weight: 58.9676 kg

DRUGS (1)
  1. WELLBUTRIN XL [Suspect]
     Dosage: 150 ONCE A DAY
     Dates: start: 20110509, end: 20110513

REACTIONS (5)
  - NIGHTMARE [None]
  - TINNITUS [None]
  - ANGER [None]
  - HALLUCINATION [None]
  - PAIN [None]
